FAERS Safety Report 23076692 (Version 1)
Quarter: 2023Q4

REPORT INFORMATION
  Report Type: Spontaneous
  Country: LT (occurrence: LT)
  Receive Date: 20231017
  Receipt Date: 20231017
  Transmission Date: 20240110
  Serious: Yes (Hospitalization)
  Sender: FDA-Public Use
  Company Number: LT-Orion Corporation ORION PHARMA-ESCI2023-0003

PATIENT
  Age: 30 Year
  Sex: Female

DRUGS (34)
  1. AMLODIPINE [Suspect]
     Active Substance: AMLODIPINE BESYLATE
     Indication: Hypertension
     Dosage: 5 MG, QD
     Route: 065
  2. BISOPROLOL [Suspect]
     Active Substance: BISOPROLOL\BISOPROLOL FUMARATE
     Indication: Hypertension
     Dosage: UNK MG, QD
     Route: 065
  3. BISOPROLOL [Suspect]
     Active Substance: BISOPROLOL\BISOPROLOL FUMARATE
     Dosage: UNK
     Route: 065
  4. DIAZEPAM [Suspect]
     Active Substance: DIAZEPAM
     Indication: Anxiety
     Dosage: 5 MG, QD
     Route: 065
  5. DIAZEPAM [Suspect]
     Active Substance: DIAZEPAM
     Indication: Mood altered
  6. DIAZEPAM [Suspect]
     Active Substance: DIAZEPAM
     Indication: Sleep disorder
  7. ESCITALOPRAM [Suspect]
     Active Substance: ESCITALOPRAM OXALATE
     Indication: Mood altered
     Dosage: 10.000MG QD
     Route: 065
  8. ESCITALOPRAM [Suspect]
     Active Substance: ESCITALOPRAM OXALATE
     Indication: Anxiety
  9. ESCITALOPRAM [Suspect]
     Active Substance: ESCITALOPRAM OXALATE
     Indication: Sleep disorder
  10. FIASP [Suspect]
     Active Substance: INSULIN ASPART
     Indication: Type 1 diabetes mellitus
     Dosage: 4 ACTION UNITS
     Route: 065
  11. FIASP [Suspect]
     Active Substance: INSULIN ASPART
     Dosage: 6 ACTION UNITS
     Route: 065
  12. DEXTROSE [Suspect]
     Active Substance: DEXTROSE\DEXTROSE MONOHYDRATE
     Indication: Product used for unknown indication
     Dosage: UNK, 5 PERCENT
     Route: 065
  13. DEXTROSE [Suspect]
     Active Substance: DEXTROSE\DEXTROSE MONOHYDRATE
     Dosage: UNK, 5 PERCENT ROUTE OF ADMIN (FREE TEXT): INTRAVENOUS (NOT OTHERWISE SPECIFIED)
     Route: 065
  14. HALOPERIDOL [Suspect]
     Active Substance: HALOPERIDOL
     Indication: Product used for unknown indication
     Dosage: 1 MG
     Route: 030
  15. INSULIN NOS [Suspect]
     Active Substance: INSULIN NOS
     Dosage: UNK, 3 ACTION UNITS
     Route: 065
  16. INSULIN NOS [Suspect]
     Active Substance: INSULIN NOS
     Dosage: UNK, 5 ACTION UNITS
     Route: 065
  17. INSULIN NOS [Suspect]
     Active Substance: INSULIN NOS
     Indication: Product used for unknown indication
     Dosage: UNK, SINGLE
     Route: 058
  18. LANTUS [Suspect]
     Active Substance: INSULIN GLARGINE
     Indication: Type 1 diabetes mellitus
     Dosage: UNK, 23 ACTION UNITS
     Route: 065
  19. LANTUS [Suspect]
     Active Substance: INSULIN GLARGINE
     Dosage: UNK, 26 ACTION UNITS
     Route: 065
  20. LORAZEPAM [Suspect]
     Active Substance: LORAZEPAM
     Indication: Mixed anxiety and depressive disorder
     Dosage: 0.5 MG, TID
     Route: 065
  21. METOCLOPRAMIDE [Suspect]
     Active Substance: METOCLOPRAMIDE
     Indication: Antiemetic supportive care
     Dosage: 10 MG, ROUTE OF ADMIN (FREE TEXT): INTRAVENOUS (NOT OTHERWISE SPECIFIED)
     Route: 065
  22. ONDANSETRON [Suspect]
     Active Substance: ONDANSETRON
     Dosage: 4 MG, BID, ROUTE OF ADMIN (FREE TEXT): INTRAVENOUS (NOT OTHERWISE SPECIFIED)
     Route: 065
  23. ONDANSETRON [Suspect]
     Active Substance: ONDANSETRON
     Indication: Antiemetic supportive care
     Dosage: 4 MG, 2 ML ROUTE OF ADMIN (FREE TEXT): INTRAVENOUS (NOT OTHERWISE SPECIFIED)
     Route: 065
  24. PAROXETINE [Suspect]
     Active Substance: PAROXETINE
     Indication: Sleep disorder
     Dosage: 20 MG, QD
     Route: 065
  25. PAROXETINE [Suspect]
     Active Substance: PAROXETINE
     Indication: Anxiety
  26. PAROXETINE [Suspect]
     Active Substance: PAROXETINE
     Indication: Mood altered
  27. POTASSIUM CHLORIDE [Suspect]
     Active Substance: POTASSIUM CHLORIDE
     Indication: Product used for unknown indication
     Dosage: UNK
     Route: 065
  28. SALINE [Suspect]
     Active Substance: SODIUM CHLORIDE
     Indication: Product used for unknown indication
     Dosage: UNK, 0.9 PERCENT
     Route: 065
  29. SULPIRIDE [Suspect]
     Active Substance: SULPIRIDE
     Indication: Mood altered
     Dosage: 200 MG, QD
     Route: 065
  30. SULPIRIDE [Suspect]
     Active Substance: SULPIRIDE
     Indication: Anxiety
  31. SULPIRIDE [Suspect]
     Active Substance: SULPIRIDE
     Indication: Sleep disorder
  32. TIAPRIDE [Suspect]
     Active Substance: TIAPRIDE
     Indication: Mood altered
     Dosage: UNK UNK, QD, UP TO 300 MG
     Route: 065
  33. TIAPRIDE [Suspect]
     Active Substance: TIAPRIDE
     Indication: Anxiety
  34. TIAPRIDE [Suspect]
     Active Substance: TIAPRIDE
     Indication: Sleep disorder

REACTIONS (3)
  - Nausea [Unknown]
  - Vomiting [Unknown]
  - Maternal exposure during pregnancy [Unknown]
